FAERS Safety Report 9337963 (Version 1)
Quarter: 2013Q2

REPORT INFORMATION
  Report Type: Report from Study
  Country: AR (occurrence: AR)
  Receive Date: 20130609
  Receipt Date: 20130609
  Transmission Date: 20140414
  Serious: Yes (Other)
  Sender: FDA-Public Use
  Company Number: PHHY2013AR019998

PATIENT
  Age: 68 Year
  Sex: Female

DRUGS (2)
  1. DIOVAN [Suspect]
     Indication: HYPERTENSION
     Dosage: 1 DF (80MG), DAILY
     Route: 048
  2. PREGABALIN [Concomitant]
     Indication: FIBROMYALGIA
     Dosage: 75 MG, UNK

REACTIONS (2)
  - Paronychia [Not Recovered/Not Resolved]
  - Pain [Not Recovered/Not Resolved]
